FAERS Safety Report 23547313 (Version 1)
Quarter: 2024Q1

REPORT INFORMATION
  Report Type: Spontaneous
  Country: US (occurrence: US)
  Receive Date: 20240221
  Receipt Date: 20240221
  Transmission Date: 20240410
  Serious: No
  Sender: FDA-Public Use
  Company Number: US-BRISTOL-MYERS SQUIBB COMPANY-2024-027796

PATIENT
  Age: 65 Year
  Sex: Female

DRUGS (1)
  1. REVLIMID [Suspect]
     Active Substance: LENALIDOMIDE
     Indication: Plasma cell myeloma in remission
     Dosage: DOSE: 25, FREQUENCY: FOR 21 DAYS
     Route: 048

REACTIONS (4)
  - Muscle spasms [Unknown]
  - Decreased appetite [Unknown]
  - Flatulence [Unknown]
  - Tremor [Unknown]
